FAERS Safety Report 18699552 (Version 2)
Quarter: 2022Q2

REPORT INFORMATION
  Report Type: Spontaneous
  Country: US (occurrence: US)
  Receive Date: 20210104
  Receipt Date: 20220503
  Transmission Date: 20220721
  Serious: No
  Sender: FDA-Public Use
  Company Number: US-PFIZER INC-2020517846

PATIENT
  Age: 61 Year
  Sex: Female
  Weight: 65.77 kg

DRUGS (10)
  1. LYRICA [Suspect]
     Active Substance: PREGABALIN
     Indication: Fibromyalgia
     Dosage: 550 MG, DAILY (50MG, TAKES BY MOUTH 4 IN THE MORNING, 3 MID DAY, 4 IN THE EVENING)
     Route: 048
     Dates: start: 2010
  2. LYRICA [Suspect]
     Active Substance: PREGABALIN
     Dosage: 75 MG
     Dates: start: 2011, end: 2011
  3. LYRICA [Suspect]
     Active Substance: PREGABALIN
     Dosage: 100 MG
  4. TOPAMAX [Concomitant]
     Active Substance: TOPIRAMATE
     Indication: Migraine
     Dosage: 25 MG, 3X/DAY
  5. CLONIDINE [Concomitant]
     Active Substance: CLONIDINE
     Indication: Blood pressure management
     Dosage: 0.3 MG, 3X/DAY
  6. ACYCLOVIR SODIUM [Concomitant]
     Active Substance: ACYCLOVIR SODIUM
     Indication: Herpes zoster
     Dosage: 1 G, 1X/DAY (1G AT BEDTIME)
  7. PANTOPRAZOLE [Concomitant]
     Active Substance: PANTOPRAZOLE
     Indication: Gastritis
     Dosage: 40 MG, 1X/DAY (1 TAB BEFORE BREAKFAST)
  8. ALPRAZOLAM [Concomitant]
     Active Substance: ALPRAZOLAM
     Indication: Panic attack
     Dosage: 3 MG, AS NEEDED
  9. TRAMADOL [Concomitant]
     Active Substance: TRAMADOL
     Indication: Pain
     Dosage: 50 MG, AS NEEDED
  10. EXCEDRIN MIGRAINE [Concomitant]
     Active Substance: ACETAMINOPHEN\ASPIRIN\CAFFEINE
     Indication: Migraine
     Dosage: UNK

REACTIONS (8)
  - Product dose omission issue [Not Recovered/Not Resolved]
  - Prescribed overdose [Not Recovered/Not Resolved]
  - Nervous system disorder [Unknown]
  - Electric shock sensation [Unknown]
  - Influenza [Unknown]
  - Asthenia [Unknown]
  - Malaise [Unknown]
  - Bedridden [Unknown]

NARRATIVE: CASE EVENT DATE: 20110101
